FAERS Safety Report 18835095 (Version 1)
Quarter: 2021Q1

REPORT INFORMATION
  Report Type: Spontaneous
  Country: US (occurrence: US)
  Receive Date: 20210203
  Receipt Date: 20210203
  Transmission Date: 20210419
  Serious: No
  Sender: FDA-Public Use
  Company Number: US-ALLERGAN-2035389US

PATIENT
  Sex: Female

DRUGS (2)
  1. BOTOX COSMETIC [Suspect]
     Active Substance: ONABOTULINUMTOXINA
     Indication: TEMPOROMANDIBULAR JOINT SYNDROME
     Dosage: 50 UNITS, SINGLE
     Dates: start: 20200827, end: 20200827
  2. BOTOX COSMETIC [Suspect]
     Active Substance: ONABOTULINUMTOXINA
     Indication: MUSCLE HYPERTROPHY
     Dosage: 50 UNITS, SINGLE
     Dates: start: 20200827, end: 20200827

REACTIONS (4)
  - Off label use [Unknown]
  - Product storage error [Unknown]
  - Drug ineffective for unapproved indication [Unknown]
  - Product preparation error [Unknown]
